FAERS Safety Report 12037273 (Version 3)
Quarter: 2017Q2

REPORT INFORMATION
  Report Type: Spontaneous
  Country: US (occurrence: US)
  Receive Date: 20160208
  Receipt Date: 20170614
  Transmission Date: 20170829
  Serious: No
  Sender: FDA-Public Use
  Company Number: US-ALEXION-A201600505

PATIENT
  Sex: Female

DRUGS (1)
  1. STRENSIQ [Suspect]
     Active Substance: ASFOTASE ALFA
     Indication: HYPOPHOSPHATASIA
     Route: 058

REACTIONS (5)
  - Injury [Unknown]
  - Wrist fracture [Unknown]
  - Articular calcification [Recovered/Resolved]
  - Mass [Recovered/Resolved]
  - Bone fragmentation [Unknown]

NARRATIVE: CASE EVENT DATE: 201511
